FAERS Safety Report 6306491-3 (Version None)
Quarter: 2009Q3

REPORT INFORMATION
  Report Type: 
  Country: None (occurrence: None)
  Receive Date: 20090811
  Receipt Date: 20090811
  Transmission Date: 20100115
  Serious: Yes (Other)
  Sender: FDA-Public Use
  Company Number: None

PATIENT
  Age: 26 Year
  Sex: Female
  Weight: 45.3597 kg

DRUGS (1)
  1. YAZ [Suspect]
     Indication: CONTRACEPTION
     Dosage: APPROXIMATELY 6 MONTHS
     Dates: start: 20090101, end: 20090801

REACTIONS (1)
  - CHLOASMA [None]
